FAERS Safety Report 9236473 (Version 1)
Quarter: 2013Q2

REPORT INFORMATION
  Report Type: Spontaneous
  Country: US (occurrence: US)
  Receive Date: 20130417
  Receipt Date: 20130417
  Transmission Date: 20140414
  Serious: Yes (Life-Threatening, Hospitalization, Other)
  Sender: FDA-Public Use
  Company Number: US-ASTRAZENECA-2013SE02806

PATIENT
  Age: 24 Day
  Sex: Female

DRUGS (3)
  1. SYNAGIS [Suspect]
     Route: 030
     Dates: start: 20121218
  2. SYNAGIS [Suspect]
     Route: 030
     Dates: start: 20130201
  3. SYNAGIS [Suspect]
     Route: 030
     Dates: start: 20130304

REACTIONS (6)
  - Pneumonia klebsiella [Unknown]
  - Cough [Unknown]
  - Nasopharyngitis [Unknown]
  - Vomiting [Unknown]
  - Respiratory syncytial virus bronchiolitis [Unknown]
  - Candida infection [Unknown]
